FAERS Safety Report 5227408-9 (Version None)
Quarter: 2007Q1

REPORT INFORMATION
  Report Type: 
  Country: None (occurrence: None)
  Receive Date: 20070202
  Receipt Date: 20070124
  Transmission Date: 20070707
  Serious: Yes (Other)
  Sender: FDA-Public Use
  Company Number: US-ELI_LILLY_AND_COMPANY-US200701004831

PATIENT
  Age: 75 Year
  Sex: Female

DRUGS (2)
  1. HUMALOG [Suspect]
     Indication: DIABETES MELLITUS
     Dosage: UNK, UNKNOWN
     Dates: start: 20010101
  2. LANTUS [Concomitant]
     Indication: DIABETES MELLITUS
     Dosage: 75 U,

REACTIONS (9)
  - ARTHRITIS [None]
  - BLOOD GLUCOSE INCREASED [None]
  - CARDIOMYOPATHY [None]
  - EXOSTOSIS [None]
  - FOOD INTOLERANCE [None]
  - GAIT DISTURBANCE [None]
  - IMPLANTABLE DEFIBRILLATOR INSERTION [None]
  - NEUROPATHY [None]
  - WEIGHT INCREASED [None]
